FAERS Safety Report 10102320 (Version 1)
Quarter: 2014Q2

REPORT INFORMATION
  Report Type: Spontaneous
  Country: US (occurrence: US)
  Receive Date: 20140424
  Receipt Date: 20140424
  Transmission Date: 20141212
  Serious: No
  Sender: FDA-Public Use
  Company Number: US-TEVA-477824USA

PATIENT
  Sex: Female

DRUGS (3)
  1. PLAN B ONE-STEP [Suspect]
     Indication: POST COITAL CONTRACEPTION
     Dosage: 1.5 MILLIGRAM DAILY;
     Route: 048
     Dates: start: 2011, end: 2011
  2. ADVIL [Concomitant]
     Indication: NERVE COMPRESSION
  3. CRANBERRY PILLS [Concomitant]
     Indication: CYSTITIS
     Route: 048

REACTIONS (1)
  - Menstruation irregular [Recovered/Resolved]
